FAERS Safety Report 5913427-3 (Version None)
Quarter: 2008Q4

REPORT INFORMATION
  Report Type: 
  Country: None (occurrence: None)
  Receive Date: 20081007
  Receipt Date: 20080922
  Transmission Date: 20090506
  Serious: Yes (Other)
  Sender: FDA-Public Use
  Company Number: 2008S1017200

PATIENT
  Age: 62 Year
  Sex: Female

DRUGS (4)
  1. ESCITALOPRAM [Suspect]
     Indication: MAJOR DEPRESSION
     Dosage: 10 MG; DAILY;
  2. PALIPERIDONE (PALIPERIDONE) [Suspect]
     Indication: MAJOR DEPRESSION
     Dosage: 6 MG; DAILY;
  3. QUETIAPINE FUMARATE [Concomitant]
  4. .. [Concomitant]
     Indication: MAJOR DEPRESSION

REACTIONS (9)
  - AFFECTIVE DISORDER [None]
  - AGITATION [None]
  - AKATHISIA [None]
  - CHOREOATHETOSIS [None]
  - HYPOMANIA [None]
  - MUSCLE RIGIDITY [None]
  - MYOCLONUS [None]
  - NERVOUSNESS [None]
  - PSYCHIATRIC SYMPTOM [None]
